FAERS Safety Report 12313818 (Version 1)
Quarter: 2016Q2

REPORT INFORMATION
  Report Type: Spontaneous
  Country: US (occurrence: US)
  Receive Date: 20160428
  Receipt Date: 20160428
  Transmission Date: 20160815
  Serious: No
  Sender: FDA-Public Use
  Company Number: US-BAUSCH-BL-2015-027185

PATIENT
  Age: 52 Year
  Sex: Male
  Weight: 77.18 kg

DRUGS (1)
  1. ZYCLARA [Suspect]
     Active Substance: IMIQUIMOD
     Indication: ACTINIC KERATOSIS
     Dosage: APPLIED AT BEDTIME
     Route: 061
     Dates: start: 20151101

REACTIONS (6)
  - Adverse drug reaction [Unknown]
  - Vision blurred [Recovered/Resolved]
  - Application site ulcer [Unknown]
  - Purulence [Unknown]
  - Application site scab [Unknown]
  - Influenza like illness [Recovered/Resolved]

NARRATIVE: CASE EVENT DATE: 201511
